FAERS Safety Report 7805302-4 (Version None)
Quarter: 2011Q4

REPORT INFORMATION
  Report Type: 
  Country: None (occurrence: None)
  Receive Date: 20111010
  Receipt Date: 20110928
  Transmission Date: 20120403
  Serious: Yes (Hospitalization)
  Sender: FDA-Public Use
  Company Number: JP-PFIZER INC-2011238004

PATIENT
  Age: 63 Year
  Sex: Male

DRUGS (10)
  1. ALLOPURINOL [Suspect]
     Indication: HYPERURICAEMIA
     Dosage: UNK
     Route: 048
     Dates: start: 20110304, end: 20110415
  2. BIASAN [Concomitant]
  3. MICARDIS [Concomitant]
  4. BANAN [Suspect]
     Indication: INFECTION PROPHYLAXIS
     Dosage: UNK
     Route: 048
     Dates: start: 20110331, end: 20110404
  5. DILTIAZEM HCL [Concomitant]
  6. LASIX [Concomitant]
  7. SIGMART [Concomitant]
  8. ISOSORBIDE MONONITRATE [Concomitant]
  9. CARVEDILOL [Concomitant]
  10. NITROPEN [Concomitant]

REACTIONS (1)
  - DRUG RASH WITH EOSINOPHILIA AND SYSTEMIC SYMPTOMS [None]
